FAERS Safety Report 19735533 (Version 1)
Quarter: 2021Q3

REPORT INFORMATION
  Report Type: Other
  Country: US (occurrence: US)
  Receive Date: 20210824
  Receipt Date: 20210824
  Transmission Date: 20211014
  Serious: No
  Sender: FDA-Public Use
  Company Number: US-ROCHE-2893923

PATIENT
  Age: 35 Year
  Sex: Female

DRUGS (1)
  1. OCREVUS [Suspect]
     Active Substance: OCRELIZUMAB
     Indication: RELAPSING MULTIPLE SCLEROSIS
     Dosage: DATE OF TREATMENT: 19/MAR/2021, 18/SEP/2020, 13/MAR/2020, 27/MAR/2020? LAST DATE OF TREATMENT: 27/MA
     Route: 042
     Dates: start: 20200313

REACTIONS (1)
  - COVID-19 [Not Recovered/Not Resolved]

NARRATIVE: CASE EVENT DATE: 20210812
